FAERS Safety Report 19860115 (Version 1)
Quarter: 2021Q3

REPORT INFORMATION
  Report Type: Spontaneous
  Country: US (occurrence: US)
  Receive Date: 20210921
  Receipt Date: 20210921
  Transmission Date: 20211014
  Serious: Yes (Hospitalization)
  Sender: FDA-Public Use
  Company Number: None

PATIENT
  Age: 41 Year
  Sex: Female
  Weight: 71.3 kg

DRUGS (1)
  1. PACLITAXEL INJECTION, USP (PACLITAXEL) [Suspect]
     Active Substance: PACLITAXEL
     Indication: BREAST CANCER
     Dosage: ?          OTHER FREQUENCY:WEEKLY;?
     Route: 042

REACTIONS (7)
  - Chest discomfort [None]
  - Pharyngeal paraesthesia [None]
  - Flushing [None]
  - Speech disorder [None]
  - Paraesthesia [None]
  - Malaise [None]
  - Infusion related reaction [None]

NARRATIVE: CASE EVENT DATE: 20210920
